FAERS Safety Report 21285477 (Version 1)
Quarter: 2022Q3

REPORT INFORMATION
  Report Type: Spontaneous
  Country: US (occurrence: None)
  Receive Date: 20220901
  Receipt Date: 20220901
  Transmission Date: 20221027
  Serious: No
  Sender: FDA-Public Use
  Company Number: None

PATIENT
  Age: 65 Year
  Sex: Female
  Weight: 72 kg

DRUGS (12)
  1. PAXLOVID [Suspect]
     Active Substance: NIRMATRELVIR\RITONAVIR
     Indication: SARS-CoV-2 test positive
     Dosage: OTHER QUANTITY : 1 TABLET(S);?FREQUENCY : TWICE A DAY;?
     Route: 048
  2. DEVICE [Concomitant]
     Active Substance: DEVICE
  3. BUPROPION [Concomitant]
     Active Substance: BUPROPION
  4. Hcl Xl [Concomitant]
  5. DONEPEZIL HYDROCHLORIDE [Concomitant]
     Active Substance: DONEPEZIL HYDROCHLORIDE
  6. TESTOSTERONE [Concomitant]
     Active Substance: TESTOSTERONE
  7. VALACYCLOVIR [Concomitant]
     Active Substance: VALACYCLOVIR HYDROCHLORIDE
  8. Jubi [Concomitant]
  9. standard daily vitamins [Concomitant]
  10. VITAMIN D3 [Concomitant]
     Active Substance: CHOLECALCIFEROL
  11. CALCIUM [Concomitant]
     Active Substance: CALCIUM
  12. GINKGO [Concomitant]
     Active Substance: GINKGO

REACTIONS (2)
  - Rebound effect [None]
  - Therapeutic product effect decreased [None]

NARRATIVE: CASE EVENT DATE: 20220831
